FAERS Safety Report 8839916 (Version 1)
Quarter: 2012Q4

REPORT INFORMATION
  Report Type: Spontaneous
  Country: US (occurrence: None)
  Receive Date: 20121012
  Receipt Date: 20121012
  Transmission Date: 20130627
  Serious: Yes (Other)
  Sender: FDA-Public Use
  Company Number: None

PATIENT
  Age: 76 Year
  Sex: Female
  Weight: 71.67 kg

DRUGS (1)
  1. AVELOX [Suspect]
     Dosage: 1 q day
     Route: 048
     Dates: start: 201210, end: 20121010

REACTIONS (5)
  - Hypoaesthesia [None]
  - Feeling abnormal [None]
  - Emotional disorder [None]
  - Hallucination, visual [None]
  - Fatigue [None]
